FAERS Safety Report 6234929-9 (Version None)
Quarter: 2009Q2

REPORT INFORMATION
  Report Type: 
  Country: None (occurrence: None)
  Receive Date: 20090618
  Receipt Date: 20090612
  Transmission Date: 20091009
  Serious: Yes (Death, Hospitalization)
  Sender: FDA-Public Use
  Company Number: A0792065A

PATIENT
  Sex: Male

DRUGS (5)
  1. AVODART [Suspect]
     Indication: PROSTATE CANCER
     Dosage: .5MG PER DAY
     Route: 048
     Dates: start: 20090528, end: 20090605
  2. LORAZEPAM [Concomitant]
  3. CARBAMAZEPINE [Concomitant]
  4. OLANZAPINE [Concomitant]
  5. HALOPERIDOL [Concomitant]

REACTIONS (2)
  - PNEUMONIA [None]
  - RESPIRATORY FAILURE [None]
